FAERS Safety Report 9928665 (Version 1)
Quarter: 2014Q1

REPORT INFORMATION
  Report Type: Spontaneous
  Country: US (occurrence: US)
  Receive Date: 20140227
  Receipt Date: 20140227
  Transmission Date: 20141002
  Serious: Yes (Other)
  Sender: FDA-Public Use
  Company Number: US-SHIRE-ALL1-2014-01280

PATIENT
  Age: 17 Year
  Sex: Male

DRUGS (2)
  1. METHYLPHENIDATE HYDROCHLORIDE USP [Suspect]
     Indication: ATTENTION DEFICIT/HYPERACTIVITY DISORDER
     Dosage: 90 MG, 1X/DAY:QD
     Route: 048
  2. METHYLPHENIDATE HYDROCHLORIDE USP [Suspect]
     Dosage: 20 MG, 1X/DAY:QD (IN THE MORNING)
     Route: 048

REACTIONS (4)
  - Hallucination, visual [Recovered/Resolved]
  - Suspiciousness [Recovered/Resolved]
  - Verbigeration [Recovered/Resolved]
  - Intentional overdose [Recovered/Resolved]
